FAERS Safety Report 8379293-4 (Version None)
Quarter: 2012Q2

REPORT INFORMATION
  Report Type: 
  Country: None (occurrence: None)
  Receive Date: 20120523
  Receipt Date: 20120515
  Transmission Date: 20120825
  Serious: Yes (Other)
  Sender: FDA-Public Use
  Company Number: PHHY2012AR004530

PATIENT
  Sex: Female

DRUGS (1)
  1. DIOVAN [Suspect]
     Indication: HYPERTENSION
     Dosage: 80 MG, DAILY

REACTIONS (7)
  - DYSPHONIA [None]
  - INFLUENZA [None]
  - SPINAL COLUMN INJURY [None]
  - BRONCHOSPASM [None]
  - MALAISE [None]
  - BLOOD PRESSURE SYSTOLIC INCREASED [None]
  - SPINAL PAIN [None]
